FAERS Safety Report 23923315 (Version 1)
Quarter: 2024Q2

REPORT INFORMATION
  Report Type: Report from Study
  Country: MX (occurrence: MX)
  Receive Date: 20240531
  Receipt Date: 20240531
  Transmission Date: 20240716
  Serious: Yes (Other)
  Sender: FDA-Public Use
  Company Number: MX-JNJFOC-20240425932

PATIENT
  Age: 69 Year
  Sex: Female
  Weight: 79 kg

DRUGS (8)
  1. SIMPONI [Suspect]
     Active Substance: GOLIMUMAB
     Indication: Ankylosing spondylitis
     Dosage: LAST DRUG APPLICATION: 06-MAR-2024
     Route: 058
     Dates: start: 20221121
  2. SIMPONI [Suspect]
     Active Substance: GOLIMUMAB
     Route: 058
     Dates: start: 20221109
  3. SULFASALAZINE [Concomitant]
     Active Substance: SULFASALAZINE
  4. ETORICOXIB [Concomitant]
     Active Substance: ETORICOXIB
  5. ACETAMINOPHEN [Concomitant]
     Active Substance: ACETAMINOPHEN
  6. OMEPRAZOLE [Concomitant]
     Active Substance: DONEPEZIL HYDROCHLORIDE\OMEPRAZOLE\OMEPRAZOLE MAGNESIUM
  7. CALTRATE [Concomitant]
     Active Substance: CALCIUM CARBONATE
  8. DEFLAZACORT [Concomitant]
     Active Substance: DEFLAZACORT
     Dosage: WITHDRAWAL PROCESS

REACTIONS (4)
  - Choroidal effusion [Unknown]
  - Eye disorder [Unknown]
  - Hypertension [Unknown]
  - Urinary tract infection [Recovered/Resolved]

NARRATIVE: CASE EVENT DATE: 20240401
